FAERS Safety Report 14241591 (Version 2)
Quarter: 2018Q1

REPORT INFORMATION
  Report Type: Spontaneous
  Country: US (occurrence: US)
  Receive Date: 20171201
  Receipt Date: 20180205
  Transmission Date: 20180508
  Serious: Yes (Other)
  Sender: FDA-Public Use
  Company Number: US-AMGEN-USASP2017177712

PATIENT
  Age: 70 Year
  Sex: Female
  Weight: 78.46 kg

DRUGS (3)
  1. VP-16 [Concomitant]
     Active Substance: ETOPOSIDE
     Indication: NEUROENDOCRINE CARCINOMA
  2. CARBO [Concomitant]
     Indication: NEUROENDOCRINE CARCINOMA
     Dosage: UNK
  3. NEULASTA [Suspect]
     Active Substance: PEGFILGRASTIM
     Indication: PROPHYLAXIS
     Dosage: 6 MG, CYCLICAL
     Route: 058

REACTIONS (3)
  - Unintentional medical device removal [Unknown]
  - Refusal of treatment by patient [Unknown]
  - Neutropenia [Recovered/Resolved]

NARRATIVE: CASE EVENT DATE: 20171012
